FAERS Safety Report 18181442 (Version 1)
Quarter: 2020Q3

REPORT INFORMATION
  Report Type: Spontaneous
  Country: DE (occurrence: DE)
  Receive Date: 20200821
  Receipt Date: 20200821
  Transmission Date: 20201103
  Serious: No
  Sender: FDA-Public Use
  Company Number: DE-HORMOSAN PHARMA GMBH-2020-04187

PATIENT
  Age: 59 Year
  Sex: Male

DRUGS (1)
  1. TADALAFIL?HORMOSAN 20 MG FILMTABLETTEN [Suspect]
     Active Substance: TADALAFIL
     Indication: ERECTILE DYSFUNCTION
     Dosage: 20 MILLIGRAM, SINGLE
     Route: 065
     Dates: start: 20200724, end: 20200724

REACTIONS (2)
  - Drug ineffective [Unknown]
  - Headache [Unknown]
